FAERS Safety Report 7162400-9 (Version None)
Quarter: 2010Q4

REPORT INFORMATION
  Report Type: 
  Country: None (occurrence: None)
  Receive Date: 20101215
  Receipt Date: 20101207
  Transmission Date: 20110411
  Serious: Yes (Disabling)
  Sender: FDA-Public Use
  Company Number: FR-ROCHE-747423

PATIENT
  Sex: Male

DRUGS (3)
  1. AVASTIN [Suspect]
     Indication: GLIOBLASTOMA
     Route: 041
     Dates: start: 20090626, end: 20090929
  2. AVASTIN [Suspect]
     Dosage: FORM: SOLUTION TO DILUTE FOR DRIP
     Route: 041
     Dates: start: 20100401, end: 20100901
  3. TEMODAL [Suspect]
     Indication: GLIOBLASTOMA
     Route: 048
     Dates: start: 20090901, end: 20100401

REACTIONS (2)
  - OPTIC NEUROPATHY [None]
  - THROMBOCYTOPENIA [None]
